FAERS Safety Report 4595340-X (Version None)
Quarter: 2005Q1

REPORT INFORMATION
  Report Type: 
  Country: None (occurrence: None)
  Receive Date: 20050225
  Receipt Date: 20050225
  Transmission Date: 20050727
  Serious: No
  Sender: FDA-Public Use
  Company Number: None

PATIENT
  Age: 48 Year
  Sex: Female
  Weight: 76.2 kg

DRUGS (2)
  1. VENLAFAXINE   37.5 MG   WYETH [Suspect]
     Indication: DEPRESSION
     Dosage: 37.5 MG  BID  ORAL
     Route: 048
     Dates: start: 20041228, end: 20050224
  2. VALPROIC ACID [Suspect]
     Indication: ABNORMAL BEHAVIOUR
     Dosage: 500 MG    BID   ORAL
     Route: 048
     Dates: start: 20040814, end: 20050224

REACTIONS (1)
  - LEUKOCYTURIA [None]
